FAERS Safety Report 23428203 (Version 1)
Quarter: 2024Q1

REPORT INFORMATION
  Report Type: Spontaneous
  Country: US (occurrence: None)
  Receive Date: 20240120
  Receipt Date: 20240120
  Transmission Date: 20240410
  Serious: Yes (Other)
  Sender: FDA-Public Use
  Company Number: None

PATIENT
  Age: 42 Year
  Sex: Male
  Weight: 67.5 kg

DRUGS (7)
  1. EMGALITY [Suspect]
     Active Substance: GALCANEZUMAB-GNLM
     Indication: Cluster headache
     Dosage: OTHER FREQUENCY : ONCE A MONTH;?
     Route: 030
     Dates: start: 20230918, end: 20231021
  2. ADDERALL [Concomitant]
  3. ALBUTEROL [Concomitant]
     Active Substance: ALBUTEROL
  4. VITAMINS [Concomitant]
     Active Substance: VITAMINS
  5. VITAMIN D NOS [Concomitant]
     Active Substance: VITAMIN D NOS
  6. BIOTIN [Concomitant]
     Active Substance: BIOTIN
  7. PROTEIN SHAKES [Concomitant]

REACTIONS (4)
  - Alopecia [None]
  - Alopecia [None]
  - Alopecia [None]
  - Product advertising issue [None]

NARRATIVE: CASE EVENT DATE: 20231201
